FAERS Safety Report 24588770 (Version 1)
Quarter: 2024Q4

REPORT INFORMATION
  Report Type: Spontaneous
  Country: GB (occurrence: GB)
  Receive Date: 20241107
  Receipt Date: 20241107
  Transmission Date: 20250115
  Serious: Yes (Other)
  Sender: BOEHRINGER INGELHEIM
  Company Number: GB-MHRA-TPP45953627C8192302YC1730892849889

PATIENT
  Age: 48 Year
  Sex: Female
  Weight: 60 kg

DRUGS (4)
  1. EMPAGLIFLOZIN [Suspect]
     Active Substance: EMPAGLIFLOZIN
     Indication: Type 2 diabetes mellitus
     Dosage: FOA-TPP YC - PLEASE RECLASSIFY
     Route: 048
     Dates: start: 20240813
  2. FERROUS SULFATE [Concomitant]
     Active Substance: FERROUS SULFATE
     Indication: Ill-defined disorder
     Dosage: TAKE ONE ONCE DAILY?FOA-TPP YC - PLEASE RECLASSIFY
     Dates: start: 20240816
  3. ATORVASTATIN [Concomitant]
     Active Substance: ATORVASTATIN
     Indication: Ill-defined disorder
     Dosage: TAKE ONE DAILY?FOA-TPP YC - PLEASE RECLASSIFY
     Dates: start: 20231212
  4. METFORMIN [Concomitant]
     Active Substance: METFORMIN HYDROCHLORIDE
     Indication: Ill-defined disorder
     Dosage: 2 DAILY WITH FOOD?FOA-TPP YC - PLEASE RECLASSIFY
     Dates: start: 20231212

REACTIONS (2)
  - Peripheral coldness [Recovered/Resolved]
  - Yellow skin [Recovered/Resolved]

NARRATIVE: CASE EVENT DATE: 20240815
